FAERS Safety Report 7217514-1 (Version None)
Quarter: 2011Q1

REPORT INFORMATION
  Report Type: 
  Country: None (occurrence: None)
  Receive Date: 20110110
  Receipt Date: 20110105
  Transmission Date: 20110831
  Serious: No
  Sender: FDA-Public Use
  Company Number: JP-ACTELION-A-CH2010-41562

PATIENT
  Age: 60 Year
  Sex: Female

DRUGS (11)
  1. BERAPROST SODIUM [Concomitant]
  2. ECABET [Concomitant]
  3. SARPOGRELATE HYDROCHLORIDE [Concomitant]
  4. MOSAPRIDE CITRATE [Concomitant]
  5. TOCOPHEROL CONCENTRATE CAP [Concomitant]
  6. TRACLEER [Suspect]
     Indication: SKIN ULCER
     Dosage: 31.25 MG, QD
     Route: 048
     Dates: start: 20100107
  7. CEVIMELINE HYDROCHLORIDE [Concomitant]
  8. OMEPRAZOLE [Concomitant]
  9. PREDNISOLONE [Concomitant]
  10. TRACLEER [Suspect]
     Dosage: 62.5 MG, QD
     Route: 048
     Dates: end: 20100216
  11. DICLOFENAC [Concomitant]

REACTIONS (3)
  - ASPARTATE AMINOTRANSFERASE INCREASED [None]
  - HEPATIC FUNCTION ABNORMAL [None]
  - ALANINE AMINOTRANSFERASE INCREASED [None]
